FAERS Safety Report 4520220-5 (Version None)
Quarter: 2004Q4

REPORT INFORMATION
  Report Type: 
  Country: None (occurrence: None)
  Receive Date: 20041022
  Receipt Date: 20040721
  Transmission Date: 20050328
  Serious: No
  Sender: FDA-Public Use
  Company Number: 2004225804US

PATIENT
  Sex: 0

DRUGS (1)
  1. INSPRA [Suspect]

REACTIONS (1)
  - STOMACH DISCOMFORT [None]
